FAERS Safety Report 23897529 (Version 1)
Quarter: 2024Q2

REPORT INFORMATION
  Report Type: Spontaneous
  Country: US (occurrence: US)
  Receive Date: 20240524
  Receipt Date: 20240524
  Transmission Date: 20240717
  Serious: No
  Sender: FDA-Public Use
  Company Number: US-SANDOZ-SDZ2024US051926

PATIENT
  Age: 50 Year
  Sex: Female

DRUGS (1)
  1. ZARXIO [Suspect]
     Active Substance: FILGRASTIM-SNDZ
     Indication: Hodgkin^s disease
     Dosage: 300 UG 2 DOSE EVERY N/A N/A
     Route: 058
     Dates: start: 20240516

REACTIONS (3)
  - White blood cell count decreased [Unknown]
  - Malaise [Unknown]
  - Fatigue [Not Recovered/Not Resolved]

NARRATIVE: CASE EVENT DATE: 20240516
